FAERS Safety Report 5581807-4 (Version None)
Quarter: 2008Q1

REPORT INFORMATION
  Report Type: 
  Country: None (occurrence: None)
  Receive Date: 20080104
  Receipt Date: 20071225
  Transmission Date: 20080703
  Serious: Yes (Other)
  Sender: FDA-Public Use
  Company Number: JP-PFIZER INC-2007108179

PATIENT
  Age: 45 Year
  Sex: Female

DRUGS (2)
  1. VFEND [Suspect]
     Indication: TRICHOSPORON INFECTION
     Dosage: DAILY DOSE:600MG
     Route: 048
     Dates: start: 20071020, end: 20071225
  2. BAKTAR [Concomitant]
     Dates: start: 20071020, end: 20071225

REACTIONS (2)
  - GENERALISED OEDEMA [None]
  - MYALGIA [None]
